FAERS Safety Report 4719065-2 (Version None)
Quarter: 2005Q3

REPORT INFORMATION
  Report Type: 
  Country: None (occurrence: None)
  Receive Date: 20050719
  Receipt Date: 20050707
  Transmission Date: 20060218
  Serious: Yes (Other)
  Sender: FDA-Public Use
  Company Number: 2005099680

PATIENT
  Age: 42 Year
  Sex: Female

DRUGS (4)
  1. RELPAX [Suspect]
     Indication: MIGRAINE
  2. DEPAKOTE [Concomitant]
  3. IXEL (MILNACIPRAN) [Concomitant]
  4. STILNOX (ZOLPIDEM) [Concomitant]

REACTIONS (3)
  - BRONCHOSPASM [None]
  - DYSPHAGIA [None]
  - OESOPHAGEAL SPASM [None]
